FAERS Safety Report 9170394 (Version 1)
Quarter: 2013Q1

REPORT INFORMATION
  Report Type: Spontaneous
  Country: US (occurrence: None)
  Receive Date: 20130308
  Receipt Date: 20130308
  Transmission Date: 20140127
  Serious: Yes (Hospitalization, Other)
  Sender: FDA-Public Use
  Company Number: AUR-APL-2013-01931

PATIENT
  Age: 56 Year
  Sex: Male

DRUGS (13)
  1. ATENOLOL (ATENOLOL) [Suspect]
     Indication: PRODUCT USED FOR UNKNOWN INDICATION
  2. OMEPRAZOLE (OMEPRAZOLE) [Suspect]
     Indication: GASTROOESOPHAGEAL REFLUX DISEASE
  3. NEXIUM (ESOMEPRAZOLE MAGNESIUM) [Suspect]
     Indication: GASTROOESOPHAGEAL REFLUX DISEASE
     Route: 048
     Dates: start: 2000, end: 201201
  4. OXYGEN (OXYGEN) [Concomitant]
  5. ALBUTEROL (SALBUTAMOL) [Concomitant]
  6. ADVAIR (SERETIDE) [Concomitant]
  7. ALPRAZOLAM (ALPRAZOLAM) [Concomitant]
  8. FENOFIBRATE(FENOFIBRATE) [Concomitant]
  9. FLUOXETINE(FLUOXETINE) [Concomitant]
  10. HYDROOODONE W/ACETAMINOPHEN(VICODIN) [Concomitant]
  11. LIPITOR(ATORVASTATIN CALCIUM) [Concomitant]
  12. SYNTHROID(LEVOTHYROXINE SODIUM) [Concomitant]
  13. PREDNISONE(PREDNISONE) [Concomitant]

REACTIONS (7)
  - Metastatic squamous cell carcinoma [None]
  - Intentional drug misuse [None]
  - Aspiration [None]
  - Gastrooesophageal reflux disease [None]
  - Pneumonia [None]
  - Dysphagia [None]
  - Drug ineffective [None]
